FAERS Safety Report 15883940 (Version 1)
Quarter: 2019Q1

REPORT INFORMATION
  Report Type: Spontaneous
  Country: US (occurrence: US)
  Receive Date: 20190107
  Receipt Date: 20190107
  Transmission Date: 20190417
  Serious: Yes (Other)
  Sender: FDA-Public Use
  Company Number: None

PATIENT
  Age: 71 Year
  Sex: Male

DRUGS (20)
  1. IMATINIB 400MG TAB [Suspect]
     Active Substance: IMATINIB
     Indication: MALIGNANT CONNECTIVE TISSUE NEOPLASM
     Route: 048
     Dates: start: 20171014
  2. IMATINIB 400MG TAB [Suspect]
     Active Substance: IMATINIB
     Indication: SOFT TISSUE SARCOMA
     Route: 048
     Dates: start: 20171014
  3. ISOSORB MONO 60MG ER [Concomitant]
  4. METFORMIN 750 MG ER [Concomitant]
  5. BENICAR 5 MG [Concomitant]
  6. ATORVASTATIN 10 MG [Concomitant]
     Active Substance: ATORVASTATIN
  7. DOXAZOSIN 4 MG [Concomitant]
     Active Substance: DOXAZOSIN\DOXAZOSIN MESYLATE
  8. ASPIRIN 81 MG EC. [Concomitant]
  9. NOVOLOG INJ 100/ML [Concomitant]
  10. METOPROLOL TAR 25 MG [Concomitant]
  11. LANTUS 100/ML [Concomitant]
  12. METFORMIN [Concomitant]
     Active Substance: METFORMIN HYDROCHLORIDE
  13. HYDROCHLOROTHIAZIDE 25 MG [Concomitant]
     Active Substance: HYDROCHLOROTHIAZIDE
  14. AMLODIPINE 2.5 MG [Concomitant]
     Active Substance: AMLODIPINE BESYLATE
  15. LEVOTHYROXINE 125 MCG [Concomitant]
     Active Substance: LEVOTHYROXINE SODIUM
  16. OLMESA MEDOX 40 MG [Concomitant]
  17. DOXAZOAIN 1 MG [Concomitant]
  18. SYNTHROID [Concomitant]
     Active Substance: LEVOTHYROXINE SODIUM
  19. HYDROCHLOROTHIAZIDE 50 MG [Concomitant]
  20. NOVOLOG [Concomitant]
     Active Substance: INSULIN ASPART

REACTIONS (2)
  - Therapy cessation [None]
  - Myocardial infarction [None]
